FAERS Safety Report 9640321 (Version 1)
Quarter: 2013Q4

REPORT INFORMATION
  Report Type: Spontaneous
  Country: US (occurrence: None)
  Receive Date: 20131021
  Receipt Date: 20131021
  Transmission Date: 20140711
  Serious: Yes (Other)
  Sender: FDA-Public Use
  Company Number: 1949020

PATIENT
  Age: 7 Year
  Sex: Female
  Weight: 18.6 kg

DRUGS (2)
  1. SODIUM CHLORIDE [Suspect]
     Dosage: UNKNOWN
  2. STERILE WATER FOR IRRIGATION [Suspect]
     Dosage: UNKNOWN

REACTIONS (3)
  - Product contamination [None]
  - Staphylococcal infection [None]
  - Pseudomonas infection [None]
